FAERS Safety Report 18305251 (Version 1)
Quarter: 2020Q3

REPORT INFORMATION
  Report Type: Spontaneous
  Country: US (occurrence: US)
  Receive Date: 20200923
  Receipt Date: 20200923
  Transmission Date: 20201103
  Serious: No
  Sender: FDA-Public Use
  Company Number: None

PATIENT
  Age: 77 Year
  Sex: Male

DRUGS (1)
  1. ALBUTEROL (ALBUTEROL 90MCG/SPRAY INHL, ORAL) [Suspect]
     Active Substance: ALBUTEROL
     Dosage: 2 PUFFS
     Route: 055

REACTIONS (1)
  - Rash [None]
